FAERS Safety Report 15665133 (Version 1)
Quarter: 2018Q4

REPORT INFORMATION
  Report Type: Spontaneous
  Country: SE (occurrence: SE)
  Receive Date: 20181128
  Receipt Date: 20181128
  Transmission Date: 20190205
  Serious: Yes (Hospitalization, Other)
  Sender: FDA-Public Use
  Company Number: SE-SAKK-2018SA152050AA

PATIENT
  Age: 36 Year
  Sex: Male

DRUGS (1)
  1. LEMTRADA [Suspect]
     Active Substance: ALEMTUZUMAB
     Indication: MULTIPLE SCLEROSIS
     Dosage: 60 MG, UNK
     Dates: start: 20150901

REACTIONS (2)
  - Neutropenia [Recovering/Resolving]
  - Respiratory tract infection bacterial [Recovering/Resolving]

NARRATIVE: CASE EVENT DATE: 20180406
